FAERS Safety Report 21646403 (Version 1)
Quarter: 2022Q4

REPORT INFORMATION
  Report Type: Spontaneous
  Country: JP (occurrence: JP)
  Receive Date: 20221126
  Receipt Date: 20221126
  Transmission Date: 20230113
  Serious: Yes (Other)
  Sender: FDA-Public Use
  Company Number: JP-Accord-287549

PATIENT
  Age: 14 Year
  Sex: Male

DRUGS (2)
  1. METHOTREXATE [Suspect]
     Active Substance: METHOTREXATE
     Indication: T-cell type acute leukaemia
     Dosage: HIGH-DOSE
     Route: 037
  2. NELARABINE [Suspect]
     Active Substance: NELARABINE
     Indication: T-cell type acute leukaemia
     Dosage: CUMULATIVE DOSE -3250 MG/M2

REACTIONS (2)
  - Myelopathy [Recovered/Resolved]
  - Leukoencephalopathy [Recovered/Resolved]
